FAERS Safety Report 21035980 (Version 1)
Quarter: 2022Q3

REPORT INFORMATION
  Report Type: Spontaneous
  Country: US (occurrence: US)
  Receive Date: 20220701
  Receipt Date: 20220701
  Transmission Date: 20221026
  Serious: No
  Sender: FDA-Public Use
  Company Number: US-NOVITIUMPHARMA-2022USNVP00089

PATIENT
  Age: 3 Week
  Sex: Male
  Weight: 6 kg

DRUGS (2)
  1. SIROLIMUS [Suspect]
     Active Substance: SIROLIMUS
     Indication: Lymphangioma
     Dates: start: 20220613
  2. VITAMIN D [Concomitant]
     Active Substance: VITAMIN D NOS
     Indication: Product used for unknown indication

REACTIONS (2)
  - Medication error [Unknown]
  - Off label use [Unknown]

NARRATIVE: CASE EVENT DATE: 20220613
